FAERS Safety Report 8457216-7 (Version None)
Quarter: 2012Q2

REPORT INFORMATION
  Report Type: 
  Country: None (occurrence: None)
  Receive Date: 20120621
  Receipt Date: 20120611
  Transmission Date: 20120825
  Serious: Yes (Death, Hospitalization, Other)
  Sender: FDA-Public Use
  Company Number: JP-BAYER-2012-056506

PATIENT
  Age: 54 Year
  Sex: Male

DRUGS (7)
  1. ASPIRIN [Suspect]
     Indication: CATHETERISATION CARDIAC
     Dosage: 100 MG, QD
     Route: 048
     Dates: start: 20090901
  2. CLOPIDOGREL BISULFATE [Suspect]
     Indication: CATHETERISATION CARDIAC
     Dosage: 75 MG, QD
     Route: 048
     Dates: start: 20090901
  3. PREDNISOLONE [Concomitant]
     Dosage: 30 MG, QD
     Route: 048
  4. CLOPIDOGREL BISULFATE [Suspect]
     Indication: PERCUTANEOUS CORONARY INTERVENTION
  5. ASPIRIN [Suspect]
     Indication: PERCUTANEOUS CORONARY INTERVENTION
  6. WARFARIN POTASSIUM [Suspect]
     Indication: ATRIAL FIBRILLATION
     Dosage: 3 MG, QD
     Route: 048
     Dates: start: 20090101
  7. ALPROSTADIL [Concomitant]
     Dosage: 10 ?G, QD
     Dates: start: 20100101

REACTIONS (4)
  - AORTIC ANEURYSM RUPTURE [None]
  - CARDIAC FAILURE [None]
  - FAT EMBOLISM [None]
  - VISUAL FIELD DEFECT [None]
